FAERS Safety Report 11863528 (Version 1)
Quarter: 2015Q4

REPORT INFORMATION
  Report Type: Spontaneous
  Country: CA (occurrence: CA)
  Receive Date: 20151223
  Receipt Date: 20151223
  Transmission Date: 20160305
  Serious: Yes (Other)
  Sender: FDA-Public Use
  Company Number: CA-BAYER-2015-489753

PATIENT
  Age: 29 Year
  Sex: Female

DRUGS (1)
  1. MIRENA [Suspect]
     Active Substance: LEVONORGESTREL
     Indication: MOOD SWINGS
     Dosage: 20 MCG/24HR, CONT
     Route: 015
     Dates: start: 201411

REACTIONS (4)
  - Off label use of device [None]
  - Mood swings [None]
  - Suicide attempt [None]
  - Confusional state [None]

NARRATIVE: CASE EVENT DATE: 201411
